FAERS Safety Report 23071347 (Version 3)
Quarter: 2024Q1

REPORT INFORMATION
  Report Type: Report from Study
  Country: US (occurrence: US)
  Receive Date: 20231016
  Receipt Date: 20240122
  Transmission Date: 20240410
  Serious: Yes (Hospitalization)
  Sender: FDA-Public Use
  Company Number: US-ABBVIE-5451535

PATIENT
  Age: 62 Year
  Sex: Male

DRUGS (2)
  1. HUMIRA [Suspect]
     Active Substance: ADALIMUMAB
     Indication: Crohn^s disease
     Dosage: FORM STRENGTH UNITS:40 MILLIGRAM?CITRATE FREE?START DATE TEXT: 04 JUL 2015 OR 2017
     Route: 058
     Dates: start: 20150704
  2. HUMIRA [Suspect]
     Active Substance: ADALIMUMAB
     Indication: Cellulitis

REACTIONS (9)
  - Pneumonia [Recovering/Resolving]
  - Off label use [Not Recovered/Not Resolved]
  - Needle issue [Not Recovered/Not Resolved]
  - Pulmonary mass [Not Recovered/Not Resolved]
  - Staphylococcus test positive [Not Recovered/Not Resolved]
  - Pain in extremity [Unknown]
  - Decreased appetite [Recovered/Resolved]
  - Asthenia [Recovering/Resolving]
  - Haemoptysis [Recovering/Resolving]

NARRATIVE: CASE EVENT DATE: 20231201
